FAERS Safety Report 20511685 (Version 2)
Quarter: 2022Q1

REPORT INFORMATION
  Report Type: Spontaneous
  Country: JP (occurrence: JP)
  Receive Date: 20220224
  Receipt Date: 20220311
  Transmission Date: 20220424
  Serious: Yes (Other)
  Sender: FDA-Public Use
  Company Number: JP-TEVA-2022-JP-2009190

PATIENT
  Age: 41 Year
  Sex: Female

DRUGS (2)
  1. PAROXETINE [Interacting]
     Active Substance: PAROXETINE
     Indication: Depression
     Dosage: 50 MILLIGRAM DAILY;
     Route: 065
  2. TRAMADOL [Interacting]
     Active Substance: TRAMADOL
     Indication: Arthralgia
     Dosage: 150 MILLIGRAM DAILY;
     Route: 065

REACTIONS (5)
  - Tremor [Unknown]
  - Dystonia [Unknown]
  - Drug interaction [Unknown]
  - Serotonin syndrome [Unknown]
  - Posture abnormal [Unknown]
